FAERS Safety Report 5314874-3 (Version None)
Quarter: 2007Q2

REPORT INFORMATION
  Report Type: 
  Country: None (occurrence: None)
  Receive Date: 20070502
  Receipt Date: 20070423
  Transmission Date: 20071010
  Serious: Yes (Hospitalization, Other)
  Sender: FDA-Public Use
  Company Number: GB-SHR-GB-2007-002770

PATIENT
  Age: 61 Year
  Sex: Male
  Weight: 78.8 kg

DRUGS (13)
  1. CAMPATH [Suspect]
     Indication: PROPHYLAXIS AGAINST TRANSPLANT REJECTION
     Dosage: 30 MG, UNK
     Route: 042
     Dates: start: 20050214, end: 20050215
  2. CAMPATH [Suspect]
     Dosage: 30 MG, UNK
     Route: 042
  3. METHYLPREDNISOLONE 16MG TAB [Concomitant]
     Indication: PREMEDICATION
     Dosage: 500 MG, 1 DOSE
     Route: 042
  4. TACROLIMUS [Concomitant]
     Indication: PROPHYLAXIS AGAINST TRANSPLANT REJECTION
     Dosage: .5 MG, 2X/DAY
     Route: 048
     Dates: start: 20050214, end: 20050101
  5. MYCOPHENOLATE MOFETIL [Concomitant]
     Indication: PROPHYLAXIS AGAINST TRANSPLANT REJECTION
     Dosage: 500 MG, 2X/DAY
     Route: 048
     Dates: start: 20050214
  6. SIROLIMUS [Concomitant]
     Indication: PROPHYLAXIS AGAINST TRANSPLANT REJECTION
     Dosage: 4 MG, 1X/DAY
     Route: 048
  7. NYSTATIN [Concomitant]
     Route: 048
     Dates: start: 20051007
  8. ASPIRIN [Concomitant]
     Dosage: 75 MG, 1X/DAY
     Route: 048
     Dates: start: 20050217
  9. OMEPRAZOLE [Concomitant]
     Dosage: 20 MG, 1X/DAY
     Route: 048
     Dates: start: 20050214
  10. SIMVASTATIN [Concomitant]
     Dosage: 10 MG, 1X/DAY
     Route: 048
     Dates: start: 20050214
  11. ATENOLOL [Concomitant]
     Indication: HYPERTENSION
     Dosage: 12.5 MG, 1X/DAY
     Route: 048
     Dates: start: 20050214
  12. ISMN ^GENERICON^ [Concomitant]
     Dosage: 20 MG, 1X/DAY
     Route: 048
     Dates: start: 20050214
  13. VORICONAZOLE [Concomitant]
     Dosage: 200 MG, 1X/DAY
     Route: 048
     Dates: start: 20051015

REACTIONS (1)
  - LYMPHOPROLIFERATIVE DISORDER [None]
